FAERS Safety Report 9693420 (Version 1)
Quarter: 2013Q4

REPORT INFORMATION
  Report Type: Spontaneous
  Country: ES (occurrence: ES)
  Receive Date: 20131118
  Receipt Date: 20131118
  Transmission Date: 20140711
  Serious: Yes (Hospitalization)
  Sender: FDA-Public Use
  Company Number: ES-ELI_LILLY_AND_COMPANY-ES201311001626

PATIENT
  Age: 70 Year
  Sex: Male

DRUGS (8)
  1. ALIMTA [Suspect]
     Indication: LUNG NEOPLASM MALIGNANT
     Dosage: UNK
     Route: 042
     Dates: start: 20130204, end: 20130204
  2. CARBOPLATIN [Suspect]
     Indication: LUNG NEOPLASM MALIGNANT
     Dosage: 730 MG, UNK
     Route: 042
     Dates: start: 20130204, end: 20130204
  3. DEXAMETHASONE [Concomitant]
     Indication: LUNG NEOPLASM MALIGNANT
     Dosage: UNK
     Dates: start: 20130203, end: 20130205
  4. ENALAPRIL [Concomitant]
     Indication: HYPERTENSION
  5. ACFOL [Concomitant]
     Dosage: 5 MG, QD
  6. ADIRO [Concomitant]
     Indication: CARDIOVASCULAR EVENT PROPHYLAXIS
     Dosage: 100 MG, QD
  7. OPTIVIT [Concomitant]
  8. PLAVIX [Concomitant]
     Indication: CARDIOVASCULAR EVENT PROPHYLAXIS
     Dosage: 75 MG, QD

REACTIONS (1)
  - Hepatitis [Recovered/Resolved]
